FAERS Safety Report 5892645-7 (Version None)
Quarter: 2008Q3

REPORT INFORMATION
  Report Type: 
  Country: None (occurrence: None)
  Receive Date: 20080919
  Receipt Date: 20080915
  Transmission Date: 20090109
  Serious: Yes (Hospitalization)
  Sender: FDA-Public Use
  Company Number: 2008BI019257

PATIENT
  Age: 24 Year
  Sex: Female

DRUGS (3)
  1. TYSABRI [Suspect]
     Indication: MULTIPLE SCLEROSIS
     Dosage: 300 MG QM IV
     Route: 042
     Dates: start: 20080630
  2. DDAVP [Concomitant]
  3. OXYTROL [Concomitant]

REACTIONS (2)
  - DEEP VEIN THROMBOSIS [None]
  - PERIPHERAL EMBOLISM [None]
